FAERS Safety Report 10137757 (Version 7)
Quarter: 2014Q4

REPORT INFORMATION
  Report Type: Spontaneous
  Country: None (occurrence: None)
  Receive Date: 20140425
  Receipt Date: 20141015
  Transmission Date: 20150528
  Serious: Yes (Hospitalization)
  Sender: FDA-Public Use
  Company Number: UTC-047544

PATIENT
  Age: 46 Year
  Sex: Female
  Weight: 90.7 kg

DRUGS (4)
  1. ADCIRCA (TADALAFIL) (UNKNOWN) [Concomitant]
  2. TRACLEER (BOSENTAN) (UNKNOWN) [Concomitant]
  3. WARFARIN (WARFARIN) (UNKNOWN) [Concomitant]
  4. REMODULIN [Suspect]
     Active Substance: TREPROSTINIL
     Indication: PULMONARY ARTERIAL HYPERTENSION
     Dosage: 115.2 UG/KG (0.08 UG/KG 1 IN 1 MIN), SUBCUTANEOUS?
     Route: 041
     Dates: start: 20130201

REACTIONS (9)
  - Fibromyalgia [None]
  - Post herpetic neuralgia [None]
  - Pain in extremity [None]
  - Drug dose omission [None]
  - Pulmonary arterial hypertension [None]
  - Right ventricular failure [None]
  - Back pain [None]
  - Medical device complication [None]
  - Chest pain [None]

NARRATIVE: CASE EVENT DATE: 20140408
